FAERS Safety Report 4634992-2 (Version None)
Quarter: 2005Q2

REPORT INFORMATION
  Report Type: 
  Country: None (occurrence: None)
  Receive Date: 20050414
  Receipt Date: 20050405
  Transmission Date: 20051028
  Serious: Yes (Hospitalization)
  Sender: FDA-Public Use
  Company Number: 200511212FR

PATIENT
  Age: 73 Year
  Sex: Male

DRUGS (5)
  1. RIFATER [Suspect]
     Indication: TUBERCULOUS PLEURISY
     Route: 048
     Dates: start: 20050206, end: 20050208
  2. AMLOR [Concomitant]
     Route: 048
  3. ALDALIX [Concomitant]
     Route: 048
  4. PERMIXON [Concomitant]
     Route: 048
  5. VITAMIN B1 AND B6 [Concomitant]
     Route: 048

REACTIONS (4)
  - DERMATITIS BULLOUS [None]
  - EPISTAXIS [None]
  - MOUTH HAEMORRHAGE [None]
  - THROMBOCYTOPENIC PURPURA [None]
